FAERS Safety Report 6006666-7 (Version None)
Quarter: 2008Q4

REPORT INFORMATION
  Report Type: 
  Country: None (occurrence: None)
  Receive Date: 20081215
  Receipt Date: 20081202
  Transmission Date: 20090506
  Serious: Yes (Hospitalization)
  Sender: FDA-Public Use
  Company Number: 1-17023831

PATIENT
  Sex: Female

DRUGS (8)
  1. METFORMIN HCL TABLET 1000 MG [Suspect]
     Indication: TYPE 2 DIABETES MELLITUS
     Dosage: 1 GRAM, 3 TIMES DAILY, ORAL
     Route: 048
  2. ACETYLSALICYLIC ACID SRT [Concomitant]
  3. CARVEDILOL [Concomitant]
  4. FUROSEMIDE [Concomitant]
  5. GLICLAZIDE [Concomitant]
  6. TELMISARTAN [Concomitant]
  7. ATORVASTATIN CALCIUM [Concomitant]
  8. INSULIN [Concomitant]

REACTIONS (11)
  - BLOOD PRESSURE DECREASED [None]
  - BRADYCARDIA [None]
  - COMA [None]
  - CONTINUOUS HAEMODIAFILTRATION [None]
  - DIARRHOEA [None]
  - HEART RATE DECREASED [None]
  - HYPOGLYCAEMIA [None]
  - LACTIC ACIDOSIS [None]
  - NAUSEA [None]
  - RENAL FAILURE ACUTE [None]
  - VOMITING [None]
